FAERS Safety Report 8629416 (Version 4)
Quarter: 2012Q4

REPORT INFORMATION
  Report Type: 
  Country: US (occurrence: US)
  Receive Date: 20120622
  Receipt Date: 20120927
  Transmission Date: 20130627
  Serious: Yes (Other)
  Sender: FDA-Public Use
  Company Number: US-PFIZER INC-2012148622

PATIENT
  Age: 53 Year
  Sex: Female

DRUGS (2)
  1. ZOLOFT [Suspect]
     Indication: ANXIETY
     Dosage: 100 mg, one tablet, 2x/day as needed
     Route: 048
     Dates: start: 20120621
  2. ZOLOFT [Suspect]
     Indication: DEPRESSION

REACTIONS (3)
  - Convulsion [Unknown]
  - Depression [Unknown]
  - Pain [Unknown]
